FAERS Safety Report 21081376 (Version 1)
Quarter: 2022Q3

REPORT INFORMATION
  Report Type: Spontaneous
  Country: US (occurrence: None)
  Receive Date: 20220713
  Receipt Date: 20220713
  Transmission Date: 20221027
  Serious: Yes (Other)
  Sender: FDA-Public Use
  Company Number: None

PATIENT
  Age: 81 Year
  Sex: Female
  Weight: 53.55 kg

DRUGS (8)
  1. POMALYST [Suspect]
     Active Substance: POMALIDOMIDE
     Indication: Plasma cell myeloma
     Dosage: OTHER FREQUENCY : 14 ON AND 7 OFF;?
     Route: 048
     Dates: start: 20200117
  2. ACYCLOVIR [Concomitant]
     Active Substance: ACYCLOVIR
  3. Aspir-81 81 mg tablet,delayed release [Concomitant]
  4. Calcium 600 + D(3) 600 mg calcium-200 unit capsule [Concomitant]
  5. multivitamin oral [Concomitant]
  6. paroxetine 10 mg tablet [Concomitant]
  7. Stool Softener 50 mg capsule [Concomitant]
  8. turmeric root extract 500 mg capsule [Concomitant]

REACTIONS (1)
  - Neutrophil count decreased [None]

NARRATIVE: CASE EVENT DATE: 20220705
